FAERS Safety Report 23509330 (Version 1)
Quarter: 2024Q1

REPORT INFORMATION
  Report Type: Spontaneous
  Country: CN (occurrence: CN)
  Receive Date: 20240210
  Receipt Date: 20240210
  Transmission Date: 20240410
  Serious: Yes (Hospitalization)
  Sender: FDA-Public Use
  Company Number: CN-STRIDES ARCOLAB LIMITED-2024SP001443

PATIENT
  Age: 30 Year
  Sex: Male
  Weight: 102 kg

DRUGS (3)
  1. TENOFOVIR DISOPROXIL FUMARATE [Suspect]
     Active Substance: TENOFOVIR DISOPROXIL FUMARATE
     Indication: Acquired immunodeficiency syndrome
     Dosage: 300 MILLIGRAM (HAART THERAPY)
     Route: 065
  2. LAMIVUDINE [Suspect]
     Active Substance: LAMIVUDINE
     Indication: Acquired immunodeficiency syndrome
     Dosage: 300 MILLIGRAM (HAART THERAPY)
     Route: 065
  3. EFAVIRENZ [Suspect]
     Active Substance: EFAVIRENZ
     Indication: Acquired immunodeficiency syndrome
     Dosage: 600 MILLIGRAM (HAART THERAPY)
     Route: 065

REACTIONS (2)
  - Hypothyroidism [Recovered/Resolved]
  - Condition aggravated [Recovered/Resolved]
